FAERS Safety Report 7455015-6 (Version None)
Quarter: 2011Q2

REPORT INFORMATION
  Report Type: 
  Country: None (occurrence: None)
  Receive Date: 20110503
  Receipt Date: 20110427
  Transmission Date: 20111010
  Serious: Yes (Hospitalization, Other)
  Sender: FDA-Public Use
  Company Number: IT-PFIZER INC-2011091256

PATIENT
  Age: 61 Year
  Sex: Male

DRUGS (2)
  1. XANAX [Suspect]
     Dosage: 22.5 MG TOTAL
     Route: 048
     Dates: start: 20110402
  2. DEPAKENE [Suspect]
     Dosage: 2 UNITS DOSES TOTAL
     Route: 048
     Dates: start: 20110402

REACTIONS (6)
  - HYPOKINESIA [None]
  - SOMNOLENCE [None]
  - SUICIDE ATTEMPT [None]
  - DRUG ABUSE [None]
  - BRADYPHRENIA [None]
  - PSYCHIATRIC SYMPTOM [None]
